FAERS Safety Report 20058511 (Version 2)
Quarter: 2021Q4

REPORT INFORMATION
  Report Type: Spontaneous
  Country: JP (occurrence: JP)
  Receive Date: 20211111
  Receipt Date: 20211208
  Transmission Date: 20220303
  Serious: Yes (Death)
  Sender: FDA-Public Use
  Company Number: JP-CELGENE-JPN-20211103174

PATIENT
  Age: 8 Decade
  Sex: Female

DRUGS (2)
  1. VIDAZA [Suspect]
     Active Substance: AZACITIDINE
     Indication: Myelodysplastic syndrome
     Dosage: 100 MILLIGRAM
     Route: 041
     Dates: start: 20210908, end: 2021
  2. VIDAZA [Suspect]
     Active Substance: AZACITIDINE
     Dosage: 100 MILLIGRAM
     Route: 041
     Dates: start: 2021, end: 2021

REACTIONS (2)
  - Myelodysplastic syndrome [Fatal]
  - Infection [Not Recovered/Not Resolved]

NARRATIVE: CASE EVENT DATE: 20210101
